FAERS Safety Report 20840035 (Version 1)
Quarter: 2022Q2

REPORT INFORMATION
  Report Type: Spontaneous
  Country: GR (occurrence: GR)
  Receive Date: 20220517
  Receipt Date: 20220517
  Transmission Date: 20220721
  Serious: Yes (Hospitalization, Other)
  Sender: FDA-Public Use
  Company Number: GR-ABBVIE-22K-066-4396366-00

PATIENT
  Age: 81 Year
  Sex: Female
  Weight: 80 kg

DRUGS (7)
  1. VENETOCLAX [Suspect]
     Active Substance: VENETOCLAX
     Indication: Chronic lymphocytic leukaemia
     Dosage: RAMP UP FROM 20 MG UNTIL 400MG
     Route: 048
     Dates: start: 202111
  2. RITUXIMAB [Concomitant]
     Active Substance: RITUXIMAB
     Indication: Chronic lymphocytic leukaemia
     Dates: start: 202111
  3. NIFEDIPINE [Concomitant]
     Active Substance: NIFEDIPINE
     Indication: Hypertension
  4. CITALOPRAM [Concomitant]
     Active Substance: CITALOPRAM HYDROBROMIDE
     Indication: Depression
  5. APIXABAN [Concomitant]
     Active Substance: APIXABAN
     Indication: Cardiac fibrillation
  6. ALLOPURINOL [Concomitant]
     Active Substance: ALLOPURINOL
     Indication: Product used for unknown indication
  7. PROPAFENONE [Concomitant]
     Active Substance: PROPAFENONE
     Indication: Cardiac fibrillation

REACTIONS (5)
  - Febrile neutropenia [Recovered/Resolved]
  - Pneumonia [Unknown]
  - Severe acute respiratory syndrome [Unknown]
  - Coronavirus infection [Unknown]
  - Tumour lysis syndrome [Recovered/Resolved]
